FAERS Safety Report 16364310 (Version 6)
Quarter: 2021Q4

REPORT INFORMATION
  Report Type: Spontaneous
  Country: US (occurrence: US)
  Receive Date: 20190528
  Receipt Date: 20211202
  Transmission Date: 20220303
  Serious: Yes (Other)
  Sender: FDA-Public Use
  Company Number: US-GILEAD-2019-0409395

PATIENT
  Age: 52 Year
  Sex: Male

DRUGS (42)
  1. ATRIPLA [Suspect]
     Active Substance: EFAVIRENZ\EMTRICITABINE\TENOFOVIR DISOPROXIL FUMARATE
     Indication: HIV infection
     Dosage: 1 DOSAGE FORM, QD
     Route: 048
     Dates: start: 201202, end: 201401
  2. COMPLERA [Suspect]
     Active Substance: EMTRICITABINE\RILPIVIRINE HYDROCHLORIDE\TENOFOVIR DISOPROXIL FUMARATE
     Indication: HIV infection
     Dosage: 1 DOSAGE FORM, QD
     Route: 048
     Dates: start: 201402, end: 201610
  3. ODEFSEY [Concomitant]
     Active Substance: EMTRICITABINE\RILPIVIRINE HYDROCHLORIDE\TENOFOVIR ALAFENAMIDE FUMARATE
  4. PIROXICAM [Concomitant]
     Active Substance: PIROXICAM
  5. AZELASTINE [Concomitant]
     Active Substance: AZELASTINE
  6. HYDROCHLOROTHIAZIDE\LISINOPRIL [Concomitant]
     Active Substance: HYDROCHLOROTHIAZIDE\LISINOPRIL
  7. NAPROXEN [Concomitant]
     Active Substance: NAPROXEN
  8. ARIPIPRAZOLE [Concomitant]
     Active Substance: ARIPIPRAZOLE
  9. TOPIRAMATE [Concomitant]
     Active Substance: TOPIRAMATE
  10. SERTRALINE [Concomitant]
     Active Substance: SERTRALINE HYDROCHLORIDE
  11. TRAZODONE [Concomitant]
     Active Substance: TRAZODONE HYDROCHLORIDE
  12. SULFASALAZINE [Concomitant]
     Active Substance: SULFASALAZINE
  13. TRIAMCINOLONE [Concomitant]
     Active Substance: TRIAMCINOLONE
  14. AMITRIPTYLINE [Concomitant]
     Active Substance: AMITRIPTYLINE
  15. AZITHROMYCIN [Concomitant]
     Active Substance: AZITHROMYCIN
  16. MELOXICAM [Concomitant]
     Active Substance: MELOXICAM
  17. FLUTICASONE [Concomitant]
     Active Substance: FLUTICASONE
  18. CELECOXIB [Concomitant]
     Active Substance: CELECOXIB
  19. CYCLOBENZAPRINE [Concomitant]
     Active Substance: CYCLOBENZAPRINE
  20. PREDNISONE [Concomitant]
     Active Substance: PREDNISONE
  21. TRAMADOL [Concomitant]
     Active Substance: TRAMADOL
  22. QVAR [Concomitant]
     Active Substance: BECLOMETHASONE DIPROPIONATE
  23. LORATADINE [Concomitant]
     Active Substance: LORATADINE
  24. OSELTAMIVIR [Concomitant]
     Active Substance: OSELTAMIVIR
  25. KETOCONAZOLE [Concomitant]
     Active Substance: KETOCONAZOLE
  26. ENBREL [Concomitant]
     Active Substance: ETANERCEPT
  27. SULFAMETHOXAZOLE AND TRIMETHOPRIM [Concomitant]
     Active Substance: SULFAMETHOXAZOLE\TRIMETHOPRIM
  28. NASONEX [Concomitant]
     Active Substance: MOMETASONE FUROATE
  29. MONTELUKAST [Concomitant]
     Active Substance: MONTELUKAST SODIUM
  30. HYDROCORTISONE [Concomitant]
     Active Substance: HYDROCORTISONE
  31. NORTRIPTYLINE [Concomitant]
     Active Substance: NORTRIPTYLINE
  32. ACETAMINOPHEN\HYDROCODONE [Concomitant]
     Active Substance: ACETAMINOPHEN\HYDROCODONE
  33. CETIRIZINE [Concomitant]
     Active Substance: CETIRIZINE HYDROCHLORIDE
  34. VENTOLIN HFA [Concomitant]
     Active Substance: ALBUTEROL SULFATE
  35. LEVOFLOXACIN [Concomitant]
     Active Substance: LEVOFLOXACIN
  36. PATADAY [Concomitant]
     Active Substance: OLOPATADINE HYDROCHLORIDE
  37. DOXYCYCLINE [Concomitant]
     Active Substance: DOXYCYCLINE
  38. CLOBETASOL [Concomitant]
     Active Substance: CLOBETASOL
  39. GUAIFENESIN [Concomitant]
     Active Substance: GUAIFENESIN
  40. PENICILLIN G POTASSIUM [Concomitant]
     Active Substance: PENICILLIN G POTASSIUM
  41. BENZATHINE BENZYLP [Concomitant]
  42. TAMIFLU [Concomitant]
     Active Substance: OSELTAMIVIR PHOSPHATE

REACTIONS (8)
  - Necrosis [Not Recovered/Not Resolved]
  - Chronic kidney disease [Not Recovered/Not Resolved]
  - Bone density decreased [Not Recovered/Not Resolved]
  - Emotional distress [Not Recovered/Not Resolved]
  - Economic problem [Not Recovered/Not Resolved]
  - Anhedonia [Not Recovered/Not Resolved]
  - Anxiety [Not Recovered/Not Resolved]
  - Pain [Not Recovered/Not Resolved]

NARRATIVE: CASE EVENT DATE: 20180504
